FAERS Safety Report 22921494 (Version 2)
Quarter: 2024Q3

REPORT INFORMATION
  Report Type: Spontaneous
  Country: US (occurrence: None)
  Receive Date: 20230908
  Receipt Date: 20240906
  Transmission Date: 20241016
  Serious: No
  Sender: DOMPE FARMACEUTICI
  Company Number: US-FARMAPROD-202306-1920

PATIENT
  Sex: Female

DRUGS (17)
  1. OXERVATE [Suspect]
     Active Substance: CENEGERMIN-BKBJ
     Indication: Neurotrophic keratopathy
     Route: 047
     Dates: start: 20230619
  2. OXERVATE [Suspect]
     Active Substance: CENEGERMIN-BKBJ
  3. POLYVINYL ALCOHOL\POVIDONE [Concomitant]
     Active Substance: POLYVINYL ALCOHOL\POVIDONE
     Dosage: 2.7%-2%
  4. THERATEARS [Concomitant]
     Active Substance: CARBOXYMETHYLCELLULOSE SODIUM
  5. VITAMIN D3 [Concomitant]
     Active Substance: CHOLECALCIFEROL
  6. CRANBERRY [Concomitant]
     Active Substance: CRANBERRY
  7. GLUCOSAMINE [Concomitant]
     Active Substance: GLUCOSAMINE
  8. MULTIVITAMIN 50 PLUS [Concomitant]
  9. VITAMIN C [Concomitant]
     Active Substance: ASCORBIC ACID
  10. DIAZEPAM [Concomitant]
     Active Substance: DIAZEPAM
  11. POLYETHYLENE GLYCOL 3350 [Concomitant]
     Active Substance: POLYETHYLENE GLYCOL 3350
  12. LEVOTHYROXINE SODIUM [Concomitant]
     Active Substance: LEVOTHYROXINE SODIUM
  13. FLUCONAZOLE [Concomitant]
     Active Substance: FLUCONAZOLE
  14. OMEPRAZOLE [Concomitant]
     Active Substance: OMEPRAZOLE
  15. FAMOTIDINE [Concomitant]
     Active Substance: FAMOTIDINE
  16. HYDROCHLOROTHIAZIDE\TRIAMTERENE [Concomitant]
     Active Substance: HYDROCHLOROTHIAZIDE\TRIAMTERENE
  17. GABAPENTIN [Concomitant]
     Active Substance: GABAPENTIN

REACTIONS (3)
  - Product dose omission issue [Unknown]
  - Eye pain [Unknown]
  - Eyelid pain [Unknown]
